FAERS Safety Report 11779539 (Version 1)
Quarter: 2015Q4

REPORT INFORMATION
  Report Type: Spontaneous
  Country: SK (occurrence: SK)
  Receive Date: 20151125
  Receipt Date: 20151125
  Transmission Date: 20160304
  Serious: Yes (Other)
  Sender: FDA-Public Use
  Company Number: SK-TEVA-611516ISR

PATIENT
  Age: 30 Year
  Sex: Male

DRUGS (7)
  1. INFLIXIMAB [Suspect]
     Active Substance: INFLIXIMAB
     Dosage: 5 MG/KG
     Route: 065
  2. AZATHIOPRINE. [Suspect]
     Active Substance: AZATHIOPRINE
     Dosage: 150 MG/DAY
     Route: 065
  3. CIPROFLOXACIN. [Suspect]
     Active Substance: CIPROFLOXACIN
     Dosage: 1.5 G/DAY
     Route: 065
  4. METRONIDAZOLE. [Suspect]
     Active Substance: METRONIDAZOLE
     Dosage: 750 MG/DAY
     Route: 065
  5. MESALAZINE [Suspect]
     Active Substance: MESALAMINE
     Dosage: 1.5 MG/DAY
     Route: 065
  6. AKTIFERRIN [Suspect]
     Active Substance: FERROUS SULFATE\SERINE
     Dosage: 750 MG/DAY
     Route: 065
  7. METHYLPREDNISOLONE. [Suspect]
     Active Substance: METHYLPREDNISOLONE
     Dosage: 0.5 MG/KG/DAY
     Route: 065

REACTIONS (1)
  - Acne fulminans [Recovered/Resolved]
